FAERS Safety Report 6115959-4 (Version None)
Quarter: 2009Q1

REPORT INFORMATION
  Report Type: 
  Country: None (occurrence: None)
  Receive Date: 20090314
  Receipt Date: 20081201
  Transmission Date: 20090719
  Serious: No
  Sender: FDA-Public Use
  Company Number: US-ABBOTT-08P-163-0451528-00

PATIENT
  Sex: Female
  Weight: 88.53 kg

DRUGS (11)
  1. HUMIRA [Suspect]
     Indication: RHEUMATOID ARTHRITIS
     Route: 058
     Dates: start: 20071101, end: 20080201
  2. HUMIRA [Suspect]
     Route: 058
     Dates: start: 20080201, end: 20081101
  3. METHOTREXATE [Concomitant]
     Indication: RHEUMATOID ARTHRITIS
     Route: 048
     Dates: start: 20071001
  4. MELOXICAM [Concomitant]
     Indication: RHEUMATOID ARTHRITIS
     Route: 048
     Dates: start: 20080101
  5. HYDROXYCHLOROQUINE [Concomitant]
     Indication: RHEUMATOID ARTHRITIS
     Route: 048
     Dates: start: 20080101
  6. OXYCODONE HYDROCHLORIDE [Concomitant]
     Indication: PAIN
     Route: 048
     Dates: start: 20071001
  7. OXYCODONE HYDROCHLORIDE [Concomitant]
     Indication: RHEUMATOID ARTHRITIS
  8. FENTANYL TRANSDERMAL SYSTEM [Concomitant]
     Indication: PAIN
     Route: 061
     Dates: start: 20080201
  9. LEFLUNOMIDE [Concomitant]
     Indication: RHEUMATOID ARTHRITIS
     Dates: start: 20071001
  10. HYDROXYCHLOROQUINE [Concomitant]
  11. CARISOPRODOL [Concomitant]
     Indication: RHEUMATOID ARTHRITIS

REACTIONS (2)
  - DRUG INEFFECTIVE [None]
  - RHEUMATOID ARTHRITIS [None]
